FAERS Safety Report 10398272 (Version 3)
Quarter: 2015Q4

REPORT INFORMATION
  Report Type: Spontaneous
  Country: TR (occurrence: TR)
  Receive Date: 20140821
  Receipt Date: 20151210
  Transmission Date: 20160304
  Serious: No
  Sender: FDA-Public Use
  Company Number: TR-JNJFOC-20140816540

PATIENT
  Sex: Male

DRUGS (1)
  1. INFLIXIMAB, RECOMBINANT [Suspect]
     Active Substance: INFLIXIMAB
     Indication: NERVOUS SYSTEM DISORDER
     Dosage: 5 MG/KG AT 0,2,6 WEEKS, THEN EVEY 6-8 WEEKS
     Route: 042

REACTIONS (2)
  - Product use issue [Unknown]
  - Off label use [Unknown]
